FAERS Safety Report 7315598-3 (Version None)
Quarter: 2011Q1

REPORT INFORMATION
  Report Type: 
  Country: None (occurrence: None)
  Receive Date: 20110225
  Receipt Date: 20110222
  Transmission Date: 20110831
  Serious: Yes (Other)
  Sender: FDA-Public Use
  Company Number: US-BRISTOL-MYERS SQUIBB COMPANY-15562481

PATIENT
  Sex: Male

DRUGS (3)
  1. ABILIFY [Suspect]
     Dosage: BETWEEN 2 + 5 DAILY
  2. PROPRANOLOL HYDROCHLORIDE [Concomitant]
  3. OPIATE SUBSTANCES [Concomitant]
     Dosage: BLOCKERS

REACTIONS (3)
  - PANIC REACTION [None]
  - DEPRESSION [None]
  - SOMNOLENCE [None]
